FAERS Safety Report 4694834-6 (Version None)
Quarter: 2005Q2

REPORT INFORMATION
  Report Type: 
  Country: None (occurrence: None)
  Receive Date: 20050620
  Receipt Date: 20050524
  Transmission Date: 20051028
  Serious: Yes (Life-Threatening, Other)
  Sender: FDA-Public Use
  Company Number: 2005AP03023

PATIENT
  Age: 24849 Day
  Sex: Female

DRUGS (16)
  1. ZESTRIL [Suspect]
     Indication: HYPERTENSION
     Route: 048
     Dates: start: 20030130, end: 20030703
  2. ZYLORIC [Suspect]
     Indication: HYPERURICAEMIA
     Route: 048
     Dates: start: 20030624, end: 20030702
  3. LIPITOR [Suspect]
     Indication: HYPERLIPIDAEMIA
     Route: 048
     Dates: start: 20030220, end: 20030704
  4. CEFZON [Suspect]
     Indication: BACTERIAL INFECTION
     Route: 048
     Dates: start: 20030701, end: 20030701
  5. PANSPORIN [Suspect]
     Indication: BACTERIAL INFECTION
     Route: 041
     Dates: start: 20030701, end: 20030701
  6. GASTER D [Suspect]
     Indication: GASTRITIS
     Route: 048
     Dates: start: 20030613, end: 20030702
  7. CALONAL [Suspect]
     Indication: HEADACHE
     Route: 048
     Dates: start: 20030625, end: 20030701
  8. WARFARIN SODIUM [Suspect]
     Indication: GLOMERULONEPHRITIS PROLIFERATIVE
     Route: 048
     Dates: start: 20030620, end: 20030623
  9. WARFARIN SODIUM [Suspect]
     Route: 048
     Dates: start: 20030624, end: 20030702
  10. ASPIRIN [Concomitant]
     Indication: THROMBOSIS PROPHYLAXIS
     Route: 048
     Dates: start: 20030220, end: 20030320
  11. SELBEX [Concomitant]
     Indication: GASTRITIS
     Route: 048
     Dates: start: 20030220, end: 20030528
  12. AMLODIN [Concomitant]
     Indication: HYPERTENSION
     Route: 048
     Dates: start: 20030220, end: 20030528
  13. PERSANTIN-L [Concomitant]
     Indication: GLOMERULONEPHRITIS CHRONIC
     Route: 048
     Dates: start: 20030220, end: 20030606
  14. LENDORMIN D [Concomitant]
     Indication: INSOMNIA
     Route: 048
     Dates: start: 20030409, end: 20030704
  15. AMLODIN [Concomitant]
     Route: 048
     Dates: start: 20030529, end: 20030703
  16. COMELIAN [Concomitant]
     Indication: GLOMERULONEPHRITIS PROLIFERATIVE
     Route: 048
     Dates: start: 20030607, end: 20030704

REACTIONS (19)
  - ADHESION [None]
  - BACTERIAL INFECTION [None]
  - GASTRITIS [None]
  - GLOMERULONEPHRITIS CHRONIC [None]
  - GLOMERULONEPHRITIS PROLIFERATIVE [None]
  - GLOMERULOSCLEROSIS [None]
  - HAEMODIALYSIS [None]
  - HEADACHE [None]
  - HYPERLIPIDAEMIA [None]
  - HYPERURICAEMIA [None]
  - INSOMNIA [None]
  - LIVER DISORDER [None]
  - PYREXIA [None]
  - RENAL DISORDER [None]
  - RENAL FAILURE ACUTE [None]
  - SHOCK [None]
  - THROMBOSIS [None]
  - TOXIC EPIDERMAL NECROLYSIS [None]
  - URINE OUTPUT DECREASED [None]
